FAERS Safety Report 7670293-6 (Version None)
Quarter: 2011Q3

REPORT INFORMATION
  Report Type: 
  Country: None (occurrence: None)
  Receive Date: 20110809
  Receipt Date: 20110729
  Transmission Date: 20111222
  Serious: Yes (Other)
  Sender: FDA-Public Use
  Company Number: MX-BIOGENIDEC-2011BI022752

PATIENT
  Age: 35 Year
  Sex: Female

DRUGS (3)
  1. TYSABRI [Suspect]
     Route: 042
     Dates: start: 20110614
  2. TYSABRI [Suspect]
     Indication: MULTIPLE SCLEROSIS
     Route: 042
     Dates: start: 20100101, end: 20100101
  3. DOSTINEX [Concomitant]
     Indication: SUPPRESSED LACTATION

REACTIONS (3)
  - HERPES ZOSTER [None]
  - AUTOIMMUNE HEPATITIS [None]
  - THROMBOCYTOPENIA [None]
